FAERS Safety Report 14242025 (Version 1)
Quarter: 2017Q4

REPORT INFORMATION
  Report Type: Report from Study
  Country: FR (occurrence: FR)
  Receive Date: 20171201
  Receipt Date: 20171201
  Transmission Date: 20180321
  Serious: Yes (Other)
  Sender: FDA-Public Use
  Company Number: FR-ROCHE-2029004

PATIENT
  Age: 73 Year
  Sex: Male

DRUGS (4)
  1. FILGRASTIM [Concomitant]
     Active Substance: FILGRASTIM
     Route: 065
     Dates: start: 20171103, end: 20171107
  2. IBRUTINIB [Suspect]
     Active Substance: IBRUTINIB
     Indication: MANTLE CELL LYMPHOMA REFRACTORY
     Dosage: CYCLE 1
     Route: 048
     Dates: start: 20160527
  3. OBINUTUZUMAB. [Suspect]
     Active Substance: OBINUTUZUMAB
     Indication: MANTLE CELL LYMPHOMA REFRACTORY
     Dosage: CYCLE 1
     Route: 042
     Dates: start: 20160526
  4. LENOGRASTIM [Concomitant]
     Active Substance: LENOGRASTIM
     Route: 065
     Dates: start: 20171027, end: 20171030

REACTIONS (1)
  - Neutropenia [Recovered/Resolved]

NARRATIVE: CASE EVENT DATE: 20171012
